FAERS Safety Report 5363744-3 (Version None)
Quarter: 2007Q2

REPORT INFORMATION
  Report Type: 
  Country: None (occurrence: None)
  Receive Date: 20070618
  Receipt Date: 20070618
  Transmission Date: 20071010
  Serious: Yes (Other)
  Sender: FDA-Public Use
  Company Number: None

PATIENT
  Age: 64 Year
  Sex: Female
  Weight: 104.3273 kg

DRUGS (2)
  1. GADOLINIUM [Suspect]
     Indication: NUCLEAR MAGNETIC RESONANCE IMAGING
  2. GADOLINIUM [Suspect]
     Indication: SCAN WITH CONTRAST

REACTIONS (13)
  - BLISTER [None]
  - CYSTITIS [None]
  - IMPAIRED HEALING [None]
  - MUSCLE SPASTICITY [None]
  - MUSCULOSKELETAL STIFFNESS [None]
  - OEDEMA PERIPHERAL [None]
  - OPEN WOUND [None]
  - PAIN [None]
  - SKIN HYPERTROPHY [None]
  - SKIN INFECTION [None]
  - SKIN ULCER [None]
  - URINARY INCONTINENCE [None]
  - WOUND SECRETION [None]
